FAERS Safety Report 24263337 (Version 2)
Quarter: 2025Q1

REPORT INFORMATION
  Report Type: Report from Study
  Country: US (occurrence: US)
  Receive Date: 20240829
  Receipt Date: 20250205
  Transmission Date: 20250408
  Serious: No
  Sender: ASTELLAS
  Company Number: US-ASTELLAS-2024US023023

PATIENT

DRUGS (6)
  1. AVACINCAPTAD PEGOL [Suspect]
     Active Substance: AVACINCAPTAD PEGOL
     Indication: Product used for unknown indication
     Dosage: 1 VIAL EVERY 28 DAYS
     Route: 050
  2. AVACINCAPTAD PEGOL [Suspect]
     Active Substance: AVACINCAPTAD PEGOL
  3. AVACINCAPTAD PEGOL [Suspect]
     Active Substance: AVACINCAPTAD PEGOL
  4. AVACINCAPTAD PEGOL [Suspect]
     Active Substance: AVACINCAPTAD PEGOL
  5. AVACINCAPTAD PEGOL [Suspect]
     Active Substance: AVACINCAPTAD PEGOL
  6. AVACINCAPTAD PEGOL [Suspect]
     Active Substance: AVACINCAPTAD PEGOL

REACTIONS (2)
  - No adverse event [Unknown]
  - Device issue [Unknown]
